FAERS Safety Report 23021789 (Version 4)
Quarter: 2025Q1

REPORT INFORMATION
  Report Type: Spontaneous
  Country: US (occurrence: US)
  Receive Date: 20231003
  Receipt Date: 20250225
  Transmission Date: 20250409
  Serious: No
  Sender: ABBVIE
  Company Number: US-ABBVIE-5430057

PATIENT
  Age: 79 Year
  Sex: Female

DRUGS (4)
  1. ARMOUR THYROID [Suspect]
     Active Substance: THYROID, PORCINE
     Indication: Thyroidectomy
     Route: 048
     Dates: start: 1964
  2. ARMOUR THYROID [Suspect]
     Active Substance: THYROID, PORCINE
     Indication: Thyroidectomy
     Route: 048
  3. ARMOUR THYROID [Suspect]
     Active Substance: THYROID, PORCINE
     Indication: Thyroidectomy
     Route: 048
  4. ARMOUR THYROID [Suspect]
     Active Substance: THYROID, PORCINE
     Indication: Thyroidectomy
     Route: 048

REACTIONS (23)
  - Psychomotor hyperactivity [Unknown]
  - Intentional product misuse [Not Recovered/Not Resolved]
  - Blood thyroid stimulating hormone increased [Recovered/Resolved]
  - Thyroxine decreased [Unknown]
  - Hypophagia [Unknown]
  - Insomnia [Unknown]
  - Tremor [Unknown]
  - Temperature intolerance [Unknown]
  - Hypothalamo-pituitary disorder [Unknown]
  - Hypertension [Unknown]
  - Product colour issue [Unknown]
  - Impaired driving ability [Unknown]
  - Paraesthesia [Unknown]
  - Hypoaesthesia [Unknown]
  - Gait disturbance [Unknown]
  - Constipation [Unknown]
  - Decreased appetite [Unknown]
  - Irritability [Unknown]
  - Off label use [Unknown]
  - Diabetes mellitus [Unknown]
  - Cardiac flutter [Unknown]
  - Blood thyroid stimulating hormone abnormal [Unknown]
  - Tri-iodothyronine decreased [Unknown]
